FAERS Safety Report 5397499-3 (Version None)
Quarter: 2007Q3

REPORT INFORMATION
  Report Type: 
  Country: None (occurrence: None)
  Receive Date: 20070726
  Receipt Date: 20070720
  Transmission Date: 20080115
  Serious: Yes (Hospitalization, Other)
  Sender: FDA-Public Use
  Company Number: HQWYE171023JUL07

PATIENT
  Sex: Female

DRUGS (17)
  1. CORDARONE [Suspect]
     Indication: ATRIAL FLUTTER
     Dosage: UNSPECIFIED
     Route: 042
     Dates: start: 20070616, end: 20070616
  2. AUGMENTIN '125' [Suspect]
     Indication: BRONCHOPNEUMOPATHY
     Dosage: UNKNOWN
     Route: 042
     Dates: start: 20070615, end: 20070618
  3. ACETAMINOPHEN [Suspect]
     Indication: BRONCHOPNEUMOPATHY
     Dosage: UNKNOWN
     Route: 048
     Dates: start: 20070614, end: 20070618
  4. ATORVASTATIN CALCIUM [Concomitant]
     Route: 048
  5. PEPCID [Concomitant]
     Route: 048
  6. KARDEGIC [Concomitant]
     Route: 048
  7. ALLOPURINOL [Concomitant]
     Route: 048
  8. LASIX [Concomitant]
     Route: 048
  9. PRITOR [Concomitant]
     Route: 048
  10. TANAKAN [Concomitant]
     Route: 048
  11. AMARYL [Concomitant]
     Route: 048
  12. ALDALIX [Concomitant]
     Route: 048
  13. CATACOL [Concomitant]
     Dosage: UNKNOWN
     Route: 031
  14. XANAX [Concomitant]
     Route: 048
  15. HEPARIN [Concomitant]
     Dosage: UNKNOWN
     Dates: start: 20070615
  16. EPTIFIBATIDE [Concomitant]
     Dosage: UNKNOWN
     Dates: start: 20070615
  17. CORDARONE [Suspect]
     Route: 048
     Dates: start: 20070616

REACTIONS (4)
  - CARDIAC FAILURE [None]
  - CONDITION AGGRAVATED [None]
  - CYTOLYTIC HEPATITIS [None]
  - HEPATIC FAILURE [None]
